FAERS Safety Report 13774942 (Version 1)
Quarter: 2017Q3

REPORT INFORMATION
  Report Type: Spontaneous
  Country: US (occurrence: US)
  Receive Date: 20170720
  Receipt Date: 20170720
  Transmission Date: 20171127
  Serious: No
  Sender: FDA-Public Use
  Company Number: US-BAYER-2017-134760

PATIENT
  Age: 31 Year
  Sex: Female

DRUGS (2)
  1. ZOFRAN [Concomitant]
     Active Substance: ONDANSETRON HYDROCHLORIDE
  2. MAGNEVIST [Suspect]
     Active Substance: GADOPENTETATE DIMEGLUMINE
     Indication: SCAN
     Dosage: UNK
     Dates: start: 20170711

REACTIONS (3)
  - Pruritus generalised [None]
  - Abdominal pain [None]
  - Urticaria [None]

NARRATIVE: CASE EVENT DATE: 201707
